FAERS Safety Report 11991313 (Version 1)
Quarter: 2016Q1

REPORT INFORMATION
  Report Type: Spontaneous
  Country: US (occurrence: US)
  Receive Date: 20160203
  Receipt Date: 20160203
  Transmission Date: 20160526
  Serious: No
  Sender: FDA-Public Use
  Company Number: US-JNJFOC-20151211100

PATIENT
  Sex: Female
  Weight: 77.11 kg

DRUGS (2)
  1. INVEGA [Suspect]
     Active Substance: PALIPERIDONE
     Indication: BIPOLAR II DISORDER
     Route: 048
     Dates: start: 201506, end: 201507
  2. LAMOTRIGINE. [Concomitant]
     Active Substance: LAMOTRIGINE
     Indication: BIPOLAR II DISORDER
     Route: 065
     Dates: start: 2006

REACTIONS (1)
  - Impaired work ability [Not Recovered/Not Resolved]
